FAERS Safety Report 7101549-3 (Version None)
Quarter: 2010Q4

REPORT INFORMATION
  Report Type: 
  Country: None (occurrence: None)
  Receive Date: 20101115
  Receipt Date: 20101110
  Transmission Date: 20110411
  Serious: Yes (Other)
  Sender: FDA-Public Use
  Company Number: BR-PFIZER INC-2010144846

PATIENT
  Age: 30 Year
  Sex: Female

DRUGS (2)
  1. LYRICA [Suspect]
     Indication: NEURALGIA
     Dosage: UNK
     Route: 048
     Dates: start: 20101109
  2. NIMESULIDE [Concomitant]
     Indication: NEURALGIA
     Dosage: UNK

REACTIONS (10)
  - DIZZINESS [None]
  - DYSPNOEA [None]
  - FATIGUE [None]
  - HEART RATE DECREASED [None]
  - HYPOTENSION [None]
  - LIVER DISORDER [None]
  - MALAISE [None]
  - SEDATION [None]
  - SOMNOLENCE [None]
  - VOMITING [None]
